FAERS Safety Report 16922280 (Version 3)
Quarter: 2019Q4

REPORT INFORMATION
  Report Type: Report from Study
  Country: AU (occurrence: AU)
  Receive Date: 20191015
  Receipt Date: 20191219
  Transmission Date: 20200122
  Serious: Yes (Other)
  Sender: FDA-Public Use
  Company Number: PHHY2017AU195786

PATIENT
  Age: 35 Year
  Sex: Male

DRUGS (1)
  1. COSENTYX [Suspect]
     Active Substance: SECUKINUMAB
     Indication: PSORIASIS
     Dosage: UNK
     Route: 065

REACTIONS (10)
  - Type 2 diabetes mellitus [Not Recovered/Not Resolved]
  - Rectal haemorrhage [Recovered/Resolved]
  - Hereditary non-polyposis colorectal cancer syndrome [Unknown]
  - Psoriatic arthropathy [Recovered/Resolved]
  - Haemorrhoids [Unknown]
  - Colon cancer stage III [Unknown]
  - Urinary tract infection [Unknown]
  - Dry skin [Not Recovered/Not Resolved]
  - Large intestine polyp [Not Recovered/Not Resolved]
  - Urinary tract infection [Recovered/Resolved]

NARRATIVE: CASE EVENT DATE: 20170725
